FAERS Safety Report 6408933-1 (Version None)
Quarter: 2009Q4

REPORT INFORMATION
  Report Type: 
  Country: None (occurrence: None)
  Receive Date: 20091021
  Receipt Date: 20091009
  Transmission Date: 20100525
  Serious: Yes (Life-Threatening)
  Sender: FDA-Public Use
  Company Number: DE-ELI_LILLY_AND_COMPANY-DE200910002262

PATIENT
  Age: 38 Year
  Sex: Male
  Weight: 66 kg

DRUGS (1)
  1. ZYPREXA [Suspect]
     Indication: PSYCHOTIC BEHAVIOUR
     Dosage: 75 MG, DAILY (1/D)
     Route: 048
     Dates: start: 20090520, end: 20090810

REACTIONS (5)
  - ASTHENIA [None]
  - BRADYCARDIA [None]
  - EXTRASYSTOLES [None]
  - HYPOTENSION [None]
  - SYNCOPE [None]
